FAERS Safety Report 4287179-X (Version None)
Quarter: 2004Q1

REPORT INFORMATION
  Report Type: 
  Country: None (occurrence: None)
  Receive Date: 20040204
  Receipt Date: 20020514
  Transmission Date: 20041129
  Serious: Yes (Hospitalization)
  Sender: FDA-Public Use
  Company Number: KII-2002-0006287

PATIENT
  Sex: Female

DRUGS (1)
  1. OXYCONTIN [Suspect]

REACTIONS (1)
  - MEDICATION ERROR [None]
